FAERS Safety Report 9226860 (Version 3)
Quarter: 2013Q2

REPORT INFORMATION
  Report Type: Spontaneous
  Country: US (occurrence: US)
  Receive Date: 20130412
  Receipt Date: 20130530
  Transmission Date: 20140414
  Serious: No
  Sender: FDA-Public Use
  Company Number: US-PFIZER INC-2013114482

PATIENT
  Sex: Female
  Weight: 63.49 kg

DRUGS (1)
  1. ADVIL PM [Suspect]
     Indication: SLEEP DISORDER
     Dosage: 200/25 MG, TWO TIMES A DAY
     Route: 048
     Dates: start: 20130406, end: 20130409

REACTIONS (2)
  - Drug ineffective [Unknown]
  - Product formulation issue [Unknown]
